FAERS Safety Report 10910917 (Version 1)
Quarter: 2015Q1

REPORT INFORMATION
  Report Type: Spontaneous
  Country: US (occurrence: US)
  Receive Date: 20150312
  Receipt Date: 20150312
  Transmission Date: 20150721
  Serious: Yes (Hospitalization)
  Sender: FDA-Public Use
  Company Number: US-JNJFOC-20150219077

PATIENT
  Age: 59 Year
  Sex: Male

DRUGS (9)
  1. MORPHINE [Concomitant]
     Active Substance: MORPHINE
  2. IMBRUVICA [Suspect]
     Active Substance: IBRUTINIB
     Indication: CHRONIC LYMPHOCYTIC LEUKAEMIA
     Route: 048
     Dates: start: 20150217
  3. LISINOPRIL. [Concomitant]
     Active Substance: LISINOPRIL
  4. OXYCODONE [Concomitant]
     Active Substance: OXYCODONE
  5. PREVACID [Concomitant]
     Active Substance: LANSOPRAZOLE
  6. ZYRTEC [Concomitant]
     Active Substance: CETIRIZINE HYDROCHLORIDE
  7. IMBRUVICA [Suspect]
     Active Substance: IBRUTINIB
     Indication: CHRONIC LYMPHOCYTIC LEUKAEMIA
     Route: 048
     Dates: start: 20150123, end: 20150125
  8. AMOXICILLIN. [Concomitant]
     Active Substance: AMOXICILLIN
  9. SUDAFED (PSEUDOEPHEDRINE HYDROCHLORIDE) [Concomitant]

REACTIONS (8)
  - Palpitations [Unknown]
  - Asthenia [Unknown]
  - Respiratory failure [Recovered/Resolved]
  - Weight decreased [Unknown]
  - Aortic stenosis [Not Recovered/Not Resolved]
  - Tumour lysis syndrome [Unknown]
  - Acute kidney injury [Recovered/Resolved]
  - Anxiety [Unknown]

NARRATIVE: CASE EVENT DATE: 2015
